FAERS Safety Report 10396327 (Version 1)
Quarter: 2014Q1

REPORT INFORMATION
  Report Type: Spontaneous
  Country: US (occurrence: None)
  Receive Date: 20130130
  Receipt Date: 20130130
  Transmission Date: 20141002
  Serious: Yes (Hospitalization, Other)
  Sender: FDA-Public Use
  Company Number: US2012001007954

PATIENT
  Age: 48 Year
  Sex: Female

DRUGS (10)
  1. BYETTA (EXENATIDE) PEN, DISPOSABLE [Suspect]
     Route: 058
  2. PHENERGAN (PROMETHAZINE HYDROCHLORIDE) [Concomitant]
  3. DIFLUCAN (FLUCONAZOLE) [Concomitant]
  4. ZOFRAN (ONDANSETRON HYDROCHLORIDE) [Concomitant]
  5. ACTOS (PIOGLITAZONE HYDROCHLORIDE) [Concomitant]
  6. CIPRO (CIPROFLOXACIN HYDROCHLORIDE) [Concomitant]
  7. GLYBURIDE (GLIBENCLAMIDE) [Concomitant]
  8. METFORMIN [Concomitant]
  9. HYDROCHLOROTHIAZIDE [Concomitant]
  10. LISINOPRIL [Concomitant]

REACTIONS (1)
  - Renal failure acute [None]
